FAERS Safety Report 9164107 (Version 1)
Quarter: 2013Q1

REPORT INFORMATION
  Report Type: Spontaneous
  Country: US (occurrence: US)
  Receive Date: 20130315
  Receipt Date: 20130315
  Transmission Date: 20140127
  Serious: Yes (Hospitalization)
  Sender: FDA-Public Use
  Company Number: US-AMGEN-US152895

PATIENT
  Age: 55 Year
  Sex: Male

DRUGS (6)
  1. ETANERCEPT [Suspect]
     Indication: PSORIASIS
     Dosage: UNK
  2. CORTISONE [Concomitant]
     Dosage: UNK, ONCE A MONTH
     Route: 030
     Dates: start: 199501
  3. BETAMETHASONE [Concomitant]
     Dosage: UNK UNK, BID
     Dates: start: 200503
  4. TESTOSTERONE/ESTROGEN [Concomitant]
     Dosage: UNK UNK, Q3WK
     Route: 030
     Dates: start: 1995, end: 200506
  5. CLOBETASOL PROPIONATE [Concomitant]
     Dosage: UNK, HS AT BEDTIME
     Dates: start: 200603
  6. DOVONEX [Concomitant]
     Dosage: UNK, HS AT BEDTIME

REACTIONS (2)
  - Tonsil cancer [Unknown]
  - Neoplasm malignant [Unknown]
